FAERS Safety Report 11713749 (Version 1)
Quarter: 2015Q4

REPORT INFORMATION
  Report Type: Spontaneous
  Country: US (occurrence: US)
  Receive Date: 20151109
  Receipt Date: 20151109
  Transmission Date: 20160304
  Serious: Yes (Hospitalization)
  Sender: FDA-Public Use
  Company Number: US-SUN PHARMACEUTICAL INDUSTRIES LTD-2015US-105584

PATIENT
  Age: 59 Year
  Sex: Female

DRUGS (1)
  1. COTRIMOXAZOLE [Suspect]
     Active Substance: SULFAMETHOXAZOLE\TRIMETHOPRIM
     Indication: SUBCUTANEOUS ABSCESS
     Route: 065

REACTIONS (4)
  - Conjunctivitis [Unknown]
  - Diffuse alveolar damage [Recovered/Resolved]
  - Organising pneumonia [Unknown]
  - Rash pruritic [Unknown]
